FAERS Safety Report 24309326 (Version 1)
Quarter: 2024Q3

REPORT INFORMATION
  Report Type: Report from Study
  Country: US (occurrence: US)
  Receive Date: 20240911
  Receipt Date: 20240911
  Transmission Date: 20241017
  Serious: Yes (Hospitalization)
  Sender: BIOGEN
  Company Number: US-BIOGEN-2024BI01281682

PATIENT
  Sex: Female

DRUGS (1)
  1. TYSABRI [Suspect]
     Active Substance: NATALIZUMAB
     Indication: Multiple sclerosis
     Route: 050
     Dates: start: 20210604

REACTIONS (7)
  - Fall [Recovered/Resolved]
  - Joint injury [Unknown]
  - Head injury [Unknown]
  - Pain [Recovered/Resolved]
  - Visual impairment [Unknown]
  - Confusional state [Unknown]
  - Dysphemia [Unknown]

NARRATIVE: CASE EVENT DATE: 20240101
